FAERS Safety Report 21586111 (Version 1)
Quarter: 2022Q4

REPORT INFORMATION
  Report Type: Spontaneous
  Country: US (occurrence: US)
  Receive Date: 20221112
  Receipt Date: 20221112
  Transmission Date: 20230113
  Serious: Yes (Death, Other)
  Sender: FDA-Public Use
  Company Number: US-AMGEN-USASP2022192758

PATIENT

DRUGS (1)
  1. BEVACIZUMAB [Suspect]
     Active Substance: BEVACIZUMAB
     Indication: Brain neoplasm
     Dosage: UNK
     Route: 065

REACTIONS (12)
  - Death [Fatal]
  - Pulmonary embolism [Fatal]
  - Brain neoplasm [Fatal]
  - Metastases to meninges [Fatal]
  - Nervous system disorder [Fatal]
  - Procedural complication [Fatal]
  - Subdural hygroma [Unknown]
  - Hemiplegia [Unknown]
  - Pseudomeningocele [Unknown]
  - Hemiparesis [Unknown]
  - Haemorrhage [Unknown]
  - Wound infection [Recovered/Resolved]
